FAERS Safety Report 9211111 (Version 3)
Quarter: 2013Q4

REPORT INFORMATION
  Report Type: Spontaneous
  Country: US (occurrence: US)
  Receive Date: 20130404
  Receipt Date: 20131003
  Transmission Date: 20140711
  Serious: Yes (Death, Hospitalization)
  Sender: FDA-Public Use
  Company Number: US-B.I. PHARMACEUTICALS,INC./RIDGEFIELD-2013-BI-08993BP

PATIENT
  Age: 80 Year
  Sex: Female
  Weight: 58.51 kg

DRUGS (18)
  1. PRADAXA [Suspect]
     Indication: ATRIAL FIBRILLATION
     Dosage: 300 MG
     Dates: start: 201011, end: 20110406
  2. KLONOPIN [Concomitant]
  3. CALCITRONIN [Concomitant]
  4. LIDODERM 5% PATCH [Concomitant]
  5. CARVEDILOL [Concomitant]
     Dosage: 6.25 MG
     Route: 048
  6. MEGESTROL [Concomitant]
  7. SPIRIVA [Concomitant]
     Dosage: 18 MCG
     Route: 055
  8. ADVAIR [Concomitant]
  9. PREDNISONE [Concomitant]
     Dosage: 5 MG
     Route: 048
  10. REMERON [Concomitant]
     Dosage: 15 MG
     Route: 048
  11. SYNTHROID [Concomitant]
     Dosage: 88 MCG
     Route: 048
  12. ALBUTEROL-IPRATROPIUM [Concomitant]
     Dosage: 8 PUF
     Route: 055
  13. CHOLECALCIFEROL [Concomitant]
     Dosage: 2000 U
     Route: 048
  14. DEMECLOCYCLINE [Concomitant]
     Dosage: 600 MG
     Route: 048
  15. FAMOTIDINE [Concomitant]
     Dosage: 20 MG
     Route: 048
  16. HALOPERIDOL [Concomitant]
     Dosage: 1.5 MG
     Route: 048
  17. LACTULOSE [Concomitant]
     Indication: CONSTIPATION
     Route: 048
  18. TRAMADOL [Concomitant]
     Indication: PAIN
     Route: 048

REACTIONS (5)
  - Gastrointestinal haemorrhage [Fatal]
  - Ulcer haemorrhage [Fatal]
  - Cardiac failure congestive [Unknown]
  - Respiratory failure [Unknown]
  - Epistaxis [Unknown]
